FAERS Safety Report 7676873-6 (Version None)
Quarter: 2011Q3

REPORT INFORMATION
  Report Type: 
  Country: None (occurrence: None)
  Receive Date: 20110805
  Receipt Date: 20110802
  Transmission Date: 20111222
  Serious: No
  Sender: FDA-Public Use
  Company Number: US-PFIZER INC-2011177466

PATIENT

DRUGS (1)
  1. LYRICA [Suspect]
     Dosage: 50 MG, UNK

REACTIONS (1)
  - NIGHTMARE [None]
